FAERS Safety Report 5140380-5 (Version None)
Quarter: 2006Q4

REPORT INFORMATION
  Report Type: 
  Country: None (occurrence: None)
  Receive Date: 20061031
  Receipt Date: 20060823
  Transmission Date: 20070319
  Serious: Yes (Life-Threatening, Hospitalization)
  Sender: FDA-Public Use
  Company Number: US-ELI_LILLY_AND_COMPANY-US200608005068

PATIENT
  Age: 69 Year
  Sex: Female
  Weight: 63.492 kg

DRUGS (5)
  1. FORTEO [Suspect]
     Indication: OSTEOPOROSIS
     Dosage: UNK, UNK
     Dates: start: 20060126, end: 20060701
  2. CALCIUM [Concomitant]
     Dosage: UNK, UNK
     Dates: start: 20010401
  3. VITAMIN D [Concomitant]
     Dosage: UNK, UNK
     Dates: start: 20010401
  4. VITAMIN B-12 [Concomitant]
  5. RANITIDINE [Concomitant]
     Dates: start: 20020201

REACTIONS (2)
  - CARDIAC ARREST [None]
  - MYOCARDIAL INFARCTION [None]
